FAERS Safety Report 15337414 (Version 1)
Quarter: 2018Q3

REPORT INFORMATION
  Report Type: Spontaneous
  Country: GB (occurrence: GB)
  Receive Date: 20180831
  Receipt Date: 20180831
  Transmission Date: 20181010
  Serious: Yes (Other)
  Sender: FDA-Public Use
  Company Number: GB-TEVA-2018-GB-949702

PATIENT
  Age: 32 Year
  Sex: Female
  Weight: 59 kg

DRUGS (10)
  1. CHLORPHENAMINE [Concomitant]
     Active Substance: CHLORPHENIRAMINE MALEATE
     Dosage: FOUR TO SIX HOURLY.
     Route: 065
     Dates: start: 20180726
  2. AMITRIPTYLINE [Concomitant]
     Active Substance: AMITRIPTYLINE
     Dosage: 100 MILLIGRAM DAILY; AT NIGHT
     Route: 065
     Dates: start: 20180706, end: 20180716
  3. FLUOXETINE [Concomitant]
     Active Substance: FLUOXETINE HYDROCHLORIDE
     Dosage: 20 MILLIGRAM DAILY;
     Route: 065
     Dates: start: 20180521
  4. COCODAMOL [Concomitant]
     Active Substance: ACETAMINOPHEN\CODEINE PHOSPHATE
     Dosage: 8MG/500MG
     Route: 065
  5. COCODAMOL [Concomitant]
     Active Substance: ACETAMINOPHEN\CODEINE PHOSPHATE
     Dosage: 30MG/500MG. 1?2  UP TO FOUR TIMES DAILY
     Route: 065
     Dates: start: 20180720
  6. CASSIA [Concomitant]
     Dosage: 15 MILLIGRAM DAILY; AT NIGHT
     Route: 065
     Dates: start: 20180618
  7. TOPIRAMATE. [Suspect]
     Active Substance: TOPIRAMATE
     Indication: VAGINAL HAEMORRHAGE
     Dosage: ONE DAILY, INCREASE AFTER TWO WEEKS TO TWICE A DAY
     Route: 048
  8. INDOMETACIN [Concomitant]
     Active Substance: INDOMETHACIN
     Dosage: 150 MILLIGRAM DAILY;
     Route: 065
     Dates: start: 20180607
  9. TRAMADOL. [Concomitant]
     Active Substance: TRAMADOL
     Route: 065
     Dates: start: 20180607
  10. ISPAGHULA EXTRACT\PSYLLIUM [Concomitant]
     Active Substance: HERBALS\PLANTAGO OVATA SEED\PLANTAGO SEED
     Dosage: AS DIRECTED.
     Route: 065
     Dates: start: 20180618

REACTIONS (2)
  - Hepatitis [Unknown]
  - Drug hypersensitivity [Recovered/Resolved]

NARRATIVE: CASE EVENT DATE: 20180726
